FAERS Safety Report 6270017-3 (Version None)
Quarter: 2009Q3

REPORT INFORMATION
  Report Type: 
  Country: None (occurrence: None)
  Receive Date: 20090716
  Receipt Date: 20090708
  Transmission Date: 20100115
  Serious: Yes (Hospitalization, Other)
  Sender: FDA-Public Use
  Company Number: US-BAYER-200836164NA

PATIENT
  Age: 19 Year
  Sex: Female
  Weight: 43 kg

DRUGS (1)
  1. MIRENA [Suspect]
     Indication: DRUG USE FOR UNKNOWN INDICATION
     Dosage: DAILY CONTINUOUS
     Route: 015
     Dates: start: 20071101, end: 20080423

REACTIONS (1)
  - UTERINE RUPTURE [None]
